FAERS Safety Report 6955484-1 (Version None)
Quarter: 2010Q3

REPORT INFORMATION
  Report Type: 
  Country: None (occurrence: None)
  Receive Date: 20100830
  Receipt Date: 20100818
  Transmission Date: 20110219
  Serious: Yes (Other)
  Sender: FDA-Public Use
  Company Number: BE-PFIZER INC-2010084983

PATIENT
  Age: 65 Year
  Sex: Male
  Weight: 77 kg

DRUGS (6)
  1. SUTENT [Suspect]
     Indication: RENAL CELL CARCINOMA
     Dosage: 50 MG, CYCLIC
     Dates: start: 20071128, end: 20090911
  2. LEVOTHYROXINE SODIUM [Concomitant]
     Dosage: 75 MG, UNK
     Route: 048
  3. NEBIVOLOL [Concomitant]
     Dosage: 5 MG, UNK
     Route: 048
  4. SIMVASTATIN [Concomitant]
     Dosage: 20 MG, UNK
     Route: 048
  5. LEUPRORELIN [Concomitant]
     Dosage: 45 MG, CYCLIC
     Route: 030
  6. ZOMETA [Concomitant]
     Dosage: 4 MG, UNK
     Route: 042

REACTIONS (1)
  - CATARACT [None]
